FAERS Safety Report 5291428-9 (Version None)
Quarter: 2007Q2

REPORT INFORMATION
  Report Type: 
  Country: None (occurrence: None)
  Receive Date: 20070402
  Receipt Date: 20070321
  Transmission Date: 20071010
  Serious: Yes (Other)
  Sender: FDA-Public Use
  Company Number: GXKR2007FR02812

PATIENT
  Age: 70 Year
  Sex: Male

DRUGS (1)
  1. METFORMIN SANDOZ (NGX)(METFORMIN) FILM-COATED TABLET, 500MG [Suspect]
     Dosage: ORAL
     Route: 048

REACTIONS (3)
  - BLINDNESS UNILATERAL [None]
  - CARDIAC FAILURE [None]
  - CEREBRAL ISCHAEMIA [None]
